FAERS Safety Report 10679527 (Version 1)
Quarter: 2014Q4

REPORT INFORMATION
  Report Type: Spontaneous
  Country: US (occurrence: US)
  Receive Date: 20141229
  Receipt Date: 20141229
  Transmission Date: 20150529
  Serious: No
  Sender: FDA-Public Use
  Company Number: US-009507513-1412USA002911

PATIENT
  Sex: Female
  Weight: 102.49 kg

DRUGS (1)
  1. NUVARING [Suspect]
     Active Substance: ETHINYL ESTRADIOL\ETONOGESTREL
     Indication: POLYCYSTIC OVARIES
     Dosage: 3 WEEKS IN/1 WEEK OUT
     Route: 067
     Dates: start: 2008

REACTIONS (7)
  - Joint swelling [Unknown]
  - Weight increased [Unknown]
  - Protein urine present [Unknown]
  - Product use issue [Unknown]
  - Abdominal discomfort [Unknown]
  - Menstrual disorder [Unknown]
  - Fluid retention [Unknown]

NARRATIVE: CASE EVENT DATE: 2008
